FAERS Safety Report 18907543 (Version 1)
Quarter: 2021Q1

REPORT INFORMATION
  Report Type: Spontaneous
  Country: US (occurrence: US)
  Receive Date: 20210218
  Receipt Date: 20210218
  Transmission Date: 20210420
  Serious: No
  Sender: FDA-Public Use
  Company Number: US-ALLERGAN-2016879US

PATIENT
  Sex: Female

DRUGS (2)
  1. FLUOROMETHOLONE, 0.1% [Suspect]
     Active Substance: FLUOROMETHOLONE
     Indication: EYE PRURITUS
     Dosage: 2 GTT, TID
     Route: 047
     Dates: start: 20200421
  2. DIGESTIVE SYSTEM MEDICATION (UNSPECIFIED) [Concomitant]
     Indication: DYSPEPSIA
     Dosage: UNK, PRN

REACTIONS (1)
  - Dysgeusia [Not Recovered/Not Resolved]

NARRATIVE: CASE EVENT DATE: 20200421
